FAERS Safety Report 5738318-2 (Version None)
Quarter: 2008Q2

REPORT INFORMATION
  Report Type: 
  Country: None (occurrence: None)
  Receive Date: 20080513
  Receipt Date: 20080428
  Transmission Date: 20081010
  Serious: Yes (Other)
  Sender: FDA-Public Use
  Company Number: 2008PV034851

PATIENT
  Age: 56 Year
  Sex: Male

DRUGS (6)
  1. SYMLIN [Suspect]
     Indication: TYPE 1 DIABETES MELLITUS
     Dosage: SC
     Route: 058
     Dates: start: 20080301, end: 20080301
  2. SYMLIN [Suspect]
     Indication: TYPE 1 DIABETES MELLITUS
     Dosage: SC
     Route: 058
     Dates: start: 20070101, end: 20080301
  3. ASPIRIN [Suspect]
     Dates: start: 19930101, end: 20080301
  4. HUMULIN R [Concomitant]
  5. LIPITOR [Concomitant]
  6. HUMULIN 50/50 [Concomitant]

REACTIONS (2)
  - ANAPHYLACTOID REACTION [None]
  - URTICARIA [None]
